FAERS Safety Report 7956646-7 (Version None)
Quarter: 2011Q4

REPORT INFORMATION
  Report Type: 
  Country: None (occurrence: None)
  Receive Date: 20111205
  Receipt Date: 20111130
  Transmission Date: 20120403
  Serious: Yes (Other)
  Sender: FDA-Public Use
  Company Number: BR-BAYER-2011-115292

PATIENT
  Age: 79 Year
  Sex: Female
  Weight: 53.3 kg

DRUGS (30)
  1. CLARITIN [Concomitant]
     Indication: RASH
     Dosage: UNK
     Dates: start: 20101121, end: 20110101
  2. ENALAPRIL MALEATE [Concomitant]
     Indication: HYPERTENSION
     Dosage: UNK
     Dates: start: 20080601, end: 20100926
  3. ALDACTONE [Concomitant]
     Indication: OEDEMA PERIPHERAL
     Dosage: UNK
     Dates: start: 20110425, end: 20110516
  4. ULTRAVIST 370 [Concomitant]
     Indication: SCAN WITH CONTRAST
     Dosage: UNK
     Dates: start: 20100602, end: 20110719
  5. DRAMIN [Concomitant]
     Indication: INSOMNIA
     Dosage: UNK
     Dates: start: 20110221, end: 20110303
  6. OMEPRAZOLE [Concomitant]
     Indication: DYSPEPSIA
     Dosage: UNK
     Dates: start: 20100304, end: 20100602
  7. NORFLOXACIN [Concomitant]
     Indication: URINARY TRACT INFECTION
     Dosage: UNK
     Dates: start: 20100630, end: 20100706
  8. RANITIDINE HCL [Concomitant]
     Indication: DYSPEPSIA
     Dosage: UNK
     Dates: start: 20100706, end: 20101107
  9. PHENERGAN [Concomitant]
     Indication: URTICARIA
     Dosage: UNK UNK, TID
     Route: 061
     Dates: start: 20100218, end: 20100222
  10. BROMOPRIDE [Concomitant]
     Indication: DYSPEPSIA
     Dosage: UNK
     Dates: start: 20100304, end: 20100602
  11. MAXITROL [Concomitant]
     Indication: EYE ALLERGY
     Dosage: UNK
     Dates: start: 20100610, end: 20100620
  12. ALDACTONE [Concomitant]
     Dosage: UNK
     Dates: start: 20110517, end: 20110623
  13. RELIEV [Concomitant]
     Indication: SCAN WITH CONTRAST
     Dosage: UNK
     Dates: start: 20100602, end: 20110719
  14. MIOCITALGAN [Concomitant]
     Indication: MUSCLE SPASMS
     Dosage: UNK, TID
     Dates: start: 20110404, end: 20110606
  15. ALDACTONE [Concomitant]
     Dosage: UNK
     Dates: start: 20110624, end: 20110627
  16. SORAFENIB (RAF KINASE INHIBITOR) [Suspect]
     Indication: HEPATIC NEOPLASM MALIGNANT
  17. NOVALGINA [Concomitant]
     Indication: ABDOMINAL PAIN
     Dosage: 40 DROPS, PRN
     Dates: start: 20100204
  18. ALLEGRA [Concomitant]
     Indication: PRURITUS
  19. ALDACTONE [Concomitant]
     Indication: ASCITES
     Dosage: UNK
     Dates: start: 20101108, end: 20110424
  20. GLYBURIDE [Concomitant]
     Indication: DIABETES MELLITUS
     Dosage: UNK
     Dates: start: 20100204, end: 20101004
  21. NOVALGINA [Concomitant]
     Indication: HEADACHE
  22. SCOPOLAMINE [Concomitant]
     Indication: ABDOMINAL PAIN
     Dosage: 1-3 PILL INTERMITENT USE
     Dates: start: 20100204
  23. BROMOPRIDE [Concomitant]
     Dosage: UNK
     Dates: start: 20100706
  24. RANITIDINE HCL [Concomitant]
     Dosage: UNK
     Dates: start: 20101108
  25. CLARITIN [Concomitant]
     Indication: URTICARIA
     Dosage: 1 DF, QD
     Route: 048
     Dates: start: 20100218, end: 20100224
  26. ENALAPRIL MALEATE [Concomitant]
     Dosage: UNK
     Dates: start: 20100927, end: 20110620
  27. BLINDED SORAFENIB (RAF KINASE INHIBITOR) [Suspect]
     Indication: HEPATIC NEOPLASM MALIGNANT
  28. IMOSEC [Concomitant]
     Indication: DIARRHOEA
     Dosage: 2 MG-10 MG DAILY INTERMITENT USE
     Dates: start: 20100725, end: 20110620
  29. ALLEGRA [Concomitant]
     Indication: RASH
     Dosage: UNK
     Dates: start: 20100628, end: 20100705
  30. ALLEGRA [Concomitant]
     Indication: SCAB

REACTIONS (1)
  - SYNCOPE [None]
